FAERS Safety Report 19421241 (Version 1)
Quarter: 2021Q2

REPORT INFORMATION
  Report Type: Spontaneous
  Country: US (occurrence: US)
  Receive Date: 20210615
  Receipt Date: 20210615
  Transmission Date: 20210717
  Serious: Yes (Other)
  Sender: FDA-Public Use
  Company Number: None

PATIENT
  Age: 56 Year
  Sex: Male

DRUGS (2)
  1. PFIZER?BIONTECH COVID?19 VACCINE [Suspect]
     Active Substance: TOZINAMERAN
     Dates: start: 20210417, end: 20210417
  2. SULFUR HEXAFLUORIDE LIPID?TYPE A MICROSPHERES [Suspect]
     Active Substance: SULFUR HEXAFLUORIDE
     Indication: DIAGNOSTIC PROCEDURE
     Dosage: ?          OTHER FREQUENCY:ONCE;?
     Route: 042
     Dates: start: 20210504, end: 20210504

REACTIONS (4)
  - Hypersensitivity [None]
  - Urticaria [None]
  - Flushing [None]
  - Blood pressure decreased [None]

NARRATIVE: CASE EVENT DATE: 20210504
